FAERS Safety Report 17179384 (Version 1)
Quarter: 2019Q4

REPORT INFORMATION
  Report Type: Spontaneous
  Country: GB (occurrence: GB)
  Receive Date: 20191219
  Receipt Date: 20191219
  Transmission Date: 20200122
  Serious: Yes (Hospitalization, Other)
  Sender: FDA-Public Use
  Company Number: GB-PFIZER INC-2019540580

PATIENT
  Age: 72 Year
  Sex: Female

DRUGS (16)
  1. SYMBICORT [Concomitant]
     Active Substance: BUDESONIDE\FORMOTEROL FUMARATE DIHYDRATE
     Dosage: 4 DF, DAILY (200/6 TURBOHALER)
     Route: 055
  2. SPIRONOLACTONE. [Concomitant]
     Active Substance: SPIRONOLACTONE
     Dosage: 25 MG, DAILY (EACH MORNING - NOT TAKEN FOR 2 DAYS UNABLE TO WB)
  3. CLOPIDOGREL [Concomitant]
     Active Substance: CLOPIDOGREL BISULFATE
     Dosage: 75 MG, DAILY
  4. OPTIVE [Concomitant]
     Active Substance: CARBOXYMETHYLCELLULOSE SODIUM\GLYCERIN
     Dosage: 0.5 %  (AS DIRECTED 20 ML)
  5. ATORVASTATIN [Concomitant]
     Active Substance: ATORVASTATIN
     Dosage: 40 MG, DAILY
  6. COCODAMOL [Concomitant]
     Active Substance: ACETAMINOPHEN\CODEINE PHOSPHATE
     Dosage: ONE OR TWO TO BE TAKEN FOUR TIMES A DAY WHEN REQUIRED(8MG/500MG)
  7. PREDNISOLONE. [Concomitant]
     Active Substance: PREDNISOLONE
     Dosage: 5 MG, DAILY (AS PER RHEUMATOLOGY - DOSE INCREASED ACUTELY UNWELL)
  8. TAPENTADOL [Concomitant]
     Active Substance: TAPENTADOL
     Dosage: 150 MG, 2X/DAY(EVERY 12 HOURS)
  9. IBUPROFEN. [Concomitant]
     Active Substance: IBUPROFEN
     Dosage: APPLY UP TO THREE TIMES A DAY
  10. CARBOCISTEINE [Concomitant]
     Active Substance: CARBOCYSTEINE
     Dosage: 2250 MG, DAILY
  11. TOFACITINIB CITRATE [Suspect]
     Active Substance: TOFACITINIB CITRATE
     Dosage: 10 MG, DAILY (HOMECARE)
     Dates: start: 201901
  12. COCODAMOL [Concomitant]
     Active Substance: ACETAMINOPHEN\CODEINE PHOSPHATE
     Dosage: ONE OR TWO TO BE TAKEN FOUR TIMES A DAY WHEN REQUIRED(30MG/500MG)
  13. BUMETANIDE. [Concomitant]
     Active Substance: BUMETANIDE
     Dosage: 1MG TABLETS 2MANE - NOT TAKEN FOR 2 DAYS DUE TO PC AND UNABLE TO WB
  14. ZOLEDRONIC ACID [Concomitant]
     Active Substance: ZOLEDRONIC ACID
     Dosage: 1 DF, EVERY YEAR (1 BAG NOT DUE ANYTIME SOON)
  15. MOMETASONE [Concomitant]
     Active Substance: MOMETASONE
     Dosage: 4 DF, DAILY(IN EACH NOSTRIL THEN REDUCE WHEN SYMPTOMS UNDER CONTROL)
  16. NITROFURANTOIN. [Concomitant]
     Active Substance: NITROFURANTOIN
     Dosage: 50 MG, DAILY (AT NIGHT)

REACTIONS (1)
  - Deep vein thrombosis [Unknown]

NARRATIVE: CASE EVENT DATE: 20190708
